FAERS Safety Report 6509945-X (Version None)
Quarter: 2009Q4

REPORT INFORMATION
  Report Type: 
  Country: None (occurrence: None)
  Receive Date: 20091222
  Receipt Date: 20091215
  Transmission Date: 20100525
  Serious: Yes (Death, Hospitalization)
  Sender: FDA-Public Use
  Company Number: PHHY2009IR55639

PATIENT

DRUGS (3)
  1. CYCLOSPORINE [Suspect]
     Indication: LIVER TRANSPLANT
  2. MYCOPHENOLATE MOFETIL [Suspect]
     Indication: LIVER TRANSPLANT
  3. PREDNISOLONE [Suspect]
     Indication: LIVER TRANSPLANT

REACTIONS (17)
  - ABDOMINAL TENDERNESS [None]
  - ABDOMINAL WALL ABSCESS [None]
  - ABDOMINAL WALL HAEMATOMA [None]
  - ABSCESS DRAINAGE [None]
  - ASCITES [None]
  - CHILLS [None]
  - DYSPNOEA [None]
  - ESCHERICHIA INFECTION [None]
  - HYPOALBUMINAEMIA [None]
  - LIVER ABSCESS [None]
  - MULTI-ORGAN FAILURE [None]
  - PERITONITIS BACTERIAL [None]
  - PULMONARY OEDEMA [None]
  - PYREXIA [None]
  - RENAL FAILURE ACUTE [None]
  - SEPSIS [None]
  - URINARY TRACT INFECTION [None]
